FAERS Safety Report 24049074 (Version 1)
Quarter: 2024Q3

REPORT INFORMATION
  Report Type: Spontaneous
  Country: US (occurrence: US)
  Receive Date: 20240704
  Receipt Date: 20240704
  Transmission Date: 20241016
  Serious: Yes (Death)
  Sender: AMGEN
  Company Number: US-AMGEN-USASP2024129473

PATIENT
  Age: 9 Year
  Sex: Male

DRUGS (3)
  1. BEVACIZUMAB [Suspect]
     Active Substance: BEVACIZUMAB
     Indication: Adrenoleukodystrophy
     Dosage: 10 MILLIGRAM/SQ. METER, Q2WK
     Route: 042
  2. DEXAMETHASONE [Concomitant]
     Active Substance: DEXAMETHASONE
     Indication: Adrenoleukodystrophy
     Dosage: 10 MILLIGRAM, QD, FOR 5 DAYS ON THE WEEK OF BEVACIZUMAB INFUSION,
     Route: 048
  3. RUXOLITINIB [Concomitant]
     Active Substance: RUXOLITINIB
     Indication: Adrenoleukodystrophy
     Dosage: 10 MILLIGRAM, QD, UNTIL BEVACIZUMAB WAS DISCONTINUED
     Route: 048

REACTIONS (3)
  - Death [Fatal]
  - Adrenoleukodystrophy [Unknown]
  - Off label use [Unknown]
